FAERS Safety Report 4425877-5 (Version None)
Quarter: 2004Q3

REPORT INFORMATION
  Report Type: 
  Country: None (occurrence: None)
  Receive Date: 20040810
  Receipt Date: 20040726
  Transmission Date: 20050211
  Serious: Yes (Other)
  Sender: FDA-Public Use
  Company Number: 2004225201DE

PATIENT
  Age: 31 Year
  Sex: Female
  Weight: 77 kg

DRUGS (2)
  1. SOMAVERT [Suspect]
     Indication: ACROMEGALY
     Dosage: 20 MG, QD,
     Dates: start: 20030511, end: 20040527
  2. LEVOTHYROXINE SODIUM [Concomitant]

REACTIONS (2)
  - NEOPLASM PROGRESSION [None]
  - PITUITARY TUMOUR BENIGN [None]
